FAERS Safety Report 5212176-7 (Version None)
Quarter: 2007Q1

REPORT INFORMATION
  Report Type: 
  Country: None (occurrence: None)
  Receive Date: 20070118
  Receipt Date: 20070109
  Transmission Date: 20070707
  Serious: Yes (Death, Disabling, Other)
  Sender: FDA-Public Use
  Company Number: US-PURDUE-USA_2006_0023445

PATIENT
  Sex: Male

DRUGS (1)
  1. OXYCONTIN [Suspect]
     Indication: DRUG USE FOR UNKNOWN INDICATION

REACTIONS (10)
  - ANHEDONIA [None]
  - ANXIETY [None]
  - DEFORMITY [None]
  - DISABILITY [None]
  - DRUG DEPENDENCE [None]
  - DRUG TOXICITY [None]
  - EMOTIONAL DISTRESS [None]
  - FEAR [None]
  - HEPATIC RUPTURE [None]
  - INJURY [None]
